FAERS Safety Report 14160969 (Version 1)
Quarter: 2017Q4

REPORT INFORMATION
  Report Type: Spontaneous
  Country: GB (occurrence: GB)
  Receive Date: 20171106
  Receipt Date: 20171106
  Transmission Date: 20180321
  Serious: Yes (Death, Other)
  Sender: FDA-Public Use
  Company Number: GB-CELGENEUS-GBR-2016124818

PATIENT
  Sex: Male

DRUGS (4)
  1. RITUXIMAB. [Concomitant]
     Active Substance: RITUXIMAB
     Indication: DIFFUSE LARGE B-CELL LYMPHOMA
     Route: 065
  2. RITUXIMAB. [Concomitant]
     Active Substance: RITUXIMAB
     Route: 065
  3. REVLIMID [Suspect]
     Active Substance: LENALIDOMIDE
     Indication: DIFFUSE LARGE B-CELL LYMPHOMA
     Dosage: 20 MG
     Route: 048
  4. RITUXIMAB. [Concomitant]
     Active Substance: RITUXIMAB
     Route: 065

REACTIONS (2)
  - Leiomyosarcoma recurrent [Fatal]
  - Myalgia [Unknown]

NARRATIVE: CASE EVENT DATE: 2017
